FAERS Safety Report 21513008 (Version 2)
Quarter: 2023Q2

REPORT INFORMATION
  Report Type: Report from Study
  Country: US (occurrence: US)
  Receive Date: 20221027
  Receipt Date: 20230531
  Transmission Date: 20230721
  Serious: Yes (Hospitalization, Other)
  Sender: FDA-Public Use
  Company Number: US-TAKEDA-2021TUS050402

PATIENT
  Sex: Female
  Weight: 73 kg

DRUGS (25)
  1. LANADELUMAB [Suspect]
     Active Substance: LANADELUMAB
     Indication: Depression
     Dosage: 300 MILLIGRAM, Q2WEEKS
     Route: 058
     Dates: start: 20210115
  2. LANADELUMAB [Suspect]
     Active Substance: LANADELUMAB
     Indication: Immune system disorder
  3. LANADELUMAB [Suspect]
     Active Substance: LANADELUMAB
     Indication: Osteoarthritis
  4. LANADELUMAB [Suspect]
     Active Substance: LANADELUMAB
     Indication: Sleep disorder
  5. LANADELUMAB [Suspect]
     Active Substance: LANADELUMAB
     Indication: Dyssomnia
  6. FIRAZYR [Suspect]
     Active Substance: ICATIBANT ACETATE
     Indication: Depression
     Dosage: 30 MILLIGRAM
     Route: 058
     Dates: start: 20150530
  7. FIRAZYR [Suspect]
     Active Substance: ICATIBANT ACETATE
     Indication: Depression
     Dosage: 30 MILLIGRAM
     Route: 058
     Dates: start: 20150530
  8. FIRAZYR [Suspect]
     Active Substance: ICATIBANT ACETATE
     Indication: Immune system disorder
  9. FIRAZYR [Suspect]
     Active Substance: ICATIBANT ACETATE
     Indication: Immune system disorder
  10. FIRAZYR [Suspect]
     Active Substance: ICATIBANT ACETATE
     Indication: Osteoarthritis
  11. FIRAZYR [Suspect]
     Active Substance: ICATIBANT ACETATE
     Indication: Osteoarthritis
  12. FIRAZYR [Suspect]
     Active Substance: ICATIBANT ACETATE
     Indication: Dyssomnia
  13. FIRAZYR [Suspect]
     Active Substance: ICATIBANT ACETATE
     Indication: Dyssomnia
  14. FIRAZYR [Suspect]
     Active Substance: ICATIBANT ACETATE
     Indication: Sleep disorder
  15. FIRAZYR [Suspect]
     Active Substance: ICATIBANT ACETATE
     Indication: Sleep disorder
  16. CALTRATE WITH VITAMIN D [Concomitant]
     Active Substance: CALCIUM CARBONATE\CHOLECALCIFEROL
     Route: 065
  17. NORCO [Concomitant]
     Active Substance: ACETAMINOPHEN\HYDROCODONE BITARTRATE
     Route: 065
  18. ADDERALL [Concomitant]
     Active Substance: AMPHETAMINE ASPARTATE\AMPHETAMINE SULFATE\DEXTROAMPHETAMINE SACCHARATE\DEXTROAMPHETAMINE SULFATE
     Route: 065
  19. LEVOTHYROXINE SODIUM [Concomitant]
     Active Substance: LEVOTHYROXINE SODIUM
     Route: 065
  20. METHADONE [Concomitant]
     Active Substance: METHADONE HYDROCHLORIDE
     Route: 065
  21. WELLBUTRIN [Concomitant]
     Active Substance: BUPROPION HYDROCHLORIDE
     Route: 065
  22. HYDROCODONE [Concomitant]
     Active Substance: HYDROCODONE
     Route: 065
  23. ACETAMINOPHEN [Concomitant]
     Active Substance: ACETAMINOPHEN
     Route: 065
  24. WELLBUTRIN XL [Concomitant]
     Active Substance: BUPROPION HYDROCHLORIDE
     Route: 065
  25. METHADONE HYDROCHLORIDE [Concomitant]
     Active Substance: METHADONE HYDROCHLORIDE

REACTIONS (6)
  - Shoulder operation [Unknown]
  - Stress [Unknown]
  - Scar [Unknown]
  - Hereditary angioedema [Unknown]
  - Injection site pain [Unknown]
  - Off label use [Unknown]
